FAERS Safety Report 7332479-X (Version None)
Quarter: 2011Q1

REPORT INFORMATION
  Report Type: 
  Country: None (occurrence: None)
  Receive Date: 20110304
  Receipt Date: 20110302
  Transmission Date: 20110831
  Serious: Yes (Hospitalization, Other)
  Sender: FDA-Public Use
  Company Number: FR-ROCHE-762947

PATIENT

DRUGS (5)
  1. RIBAVIRIN [Suspect]
     Indication: HEPATITIS C
     Route: 048
     Dates: start: 20101108
  2. ATACAND [Concomitant]
     Indication: HYPERTENSION
  3. PEGINTERFERON ALFA-2A [Suspect]
     Indication: HEPATITIS C
     Route: 058
     Dates: start: 20101108
  4. ARANESP [Concomitant]
  5. NOVORAPID [Concomitant]

REACTIONS (2)
  - ANAEMIA [None]
  - PROSTATITIS [None]
